FAERS Safety Report 6481874-X (Version None)
Quarter: 2009Q4

REPORT INFORMATION
  Report Type: 
  Country: None (occurrence: None)
  Receive Date: 20091208
  Receipt Date: 20090327
  Transmission Date: 20100525
  Serious: No
  Sender: FDA-Public Use
  Company Number: US-AMGEN-KDL340518

PATIENT
  Sex: Male

DRUGS (2)
  1. ENBREL [Suspect]
     Indication: RHEUMATOID ARTHRITIS
     Route: 058
     Dates: start: 20090213
  2. ENBREL [Suspect]
     Indication: PSORIASIS

REACTIONS (4)
  - EPISTAXIS [None]
  - HEADACHE [None]
  - INCREASED TENDENCY TO BRUISE [None]
  - PHOTOPHOBIA [None]
